FAERS Safety Report 13472671 (Version 2)
Quarter: 2017Q2

REPORT INFORMATION
  Report Type: Spontaneous
  Country: US (occurrence: US)
  Receive Date: 20170424
  Receipt Date: 20170503
  Transmission Date: 20170830
  Serious: Yes (Hospitalization, Other)
  Sender: FDA-Public Use
  Company Number: US-PFIZER INC-2017171391

PATIENT
  Age: 80 Year
  Sex: Female

DRUGS (2)
  1. DIFLUCAN [Suspect]
     Active Substance: FLUCONAZOLE
     Indication: FUNGAL INFECTION
     Dosage: HIGH DOSE
     Dates: start: 201611
  2. SAMSCA [Suspect]
     Active Substance: TOLVAPTAN
     Indication: HYPONATRAEMIA
     Dosage: 15 MG, UNK
     Dates: start: 20161119, end: 20161121

REACTIONS (7)
  - Fungal infection [Unknown]
  - Drug ineffective [Unknown]
  - Embolism [Unknown]
  - Respiratory failure [Unknown]
  - Hepatic failure [Unknown]
  - Hypotension [Unknown]
  - Liver function test abnormal [Recovered/Resolved]

NARRATIVE: CASE EVENT DATE: 20161123
